FAERS Safety Report 15992898 (Version 1)
Quarter: 2019Q1

REPORT INFORMATION
  Report Type: Spontaneous
  Country: GB (occurrence: GB)
  Receive Date: 20190221
  Receipt Date: 20190221
  Transmission Date: 20190418
  Serious: Yes (Other)
  Sender: FDA-Public Use
  Company Number: GB-TEVA-2019-GB-1013653

PATIENT
  Age: 29 Year
  Sex: Female
  Weight: 46 kg

DRUGS (7)
  1. MONTELUKAST [Concomitant]
     Active Substance: MONTELUKAST SODIUM
     Dosage: 1 DOSAGE FORMS DAILY; AT NIGHT.
     Dates: start: 20180406
  2. ZOLMITRIPTAN. [Concomitant]
     Active Substance: ZOLMITRIPTAN
     Dosage: AS DIRECTED
     Dates: start: 20190116, end: 20190117
  3. AMITRIPTYLINE HYDROCHLORIDE. [Concomitant]
     Active Substance: AMITRIPTYLINE HYDROCHLORIDE
     Dosage: USE AS DIRECTED
     Dates: start: 20190123
  4. FEXOFENADINE [Concomitant]
     Active Substance: FEXOFENADINE\FEXOFENADINE HYDROCHLORIDE
     Dosage: 4 DOSAGE FORMS DAILY;
     Dates: start: 20180406
  5. NAPROXEN. [Concomitant]
     Active Substance: NAPROXEN
     Dosage: 2 DOSAGE FORMS DAILY;
     Dates: start: 20190116
  6. TOPIRAMATE. [Suspect]
     Active Substance: TOPIRAMATE
     Dosage: USE AS DIRECTED
     Dates: start: 20190116
  7. EMERADE [Concomitant]
     Dosage: USE AS DIRECTED
     Dates: start: 20180620

REACTIONS (1)
  - Rash pruritic [Recovered/Resolved]

NARRATIVE: CASE EVENT DATE: 20190123
